FAERS Safety Report 8934475 (Version 1)
Quarter: 2012Q4

REPORT INFORMATION
  Report Type: 
  Country: IT (occurrence: IT)
  Receive Date: 20121129
  Receipt Date: 20121129
  Transmission Date: 20130627
  Serious: Yes (Hospitalization)
  Sender: FDA-Public Use
  Company Number: IT-BAYER-2012-122671

PATIENT
  Age: 60 Year
  Sex: Male

DRUGS (1)
  1. CIPROFLOXACIN [Suspect]
     Indication: BRONCHITIS
     Dosage: Daily dose 500 mg
     Route: 048
     Dates: start: 20121025, end: 20121027

REACTIONS (2)
  - Penile blister [Recovering/Resolving]
  - Blood blister [Recovering/Resolving]
